FAERS Safety Report 5613688-4 (Version None)
Quarter: 2008Q1

REPORT INFORMATION
  Report Type: 
  Country: None (occurrence: None)
  Receive Date: 20080205
  Receipt Date: 20080122
  Transmission Date: 20080703
  Serious: Yes (Hospitalization)
  Sender: FDA-Public Use
  Company Number: CA-ELI_LILLY_AND_COMPANY-CA200708001493

PATIENT
  Age: 53 Year
  Sex: Female

DRUGS (20)
  1. FORTEO [Suspect]
     Indication: OSTEOPOROSIS
     Dosage: 20 UG, DAILY (1/D)
     Route: 058
     Dates: start: 20060601
  2. ATACAND [Concomitant]
  3. PREVACID [Concomitant]
  4. FUROSEMIDE [Concomitant]
  5. ACEBUTOLOL [Concomitant]
  6. NITRAZEPAM [Concomitant]
  7. ASACOL [Concomitant]
  8. ENTOCORT EC [Concomitant]
  9. CORTIFOAM [Concomitant]
  10. DICETEL [Concomitant]
  11. WELLBUTRIN [Concomitant]
  12. SLOW-K [Concomitant]
  13. LEVOTHYROXINE SODIUM [Concomitant]
  14. CALTRATE [Concomitant]
  15. VITAMIN D [Concomitant]
  16. AMLODIPINE [Concomitant]
  17. NOVO-GABAPENTIN [Concomitant]
  18. REFRESH TEARS LUBRICANT [Concomitant]
  19. HYDRASENSE [Concomitant]
  20. ACIDOPHILUS [Concomitant]

REACTIONS (3)
  - CROHN'S DISEASE [None]
  - LIMB DISCOMFORT [None]
  - SKIN ULCER [None]
